FAERS Safety Report 5962086-2 (Version None)
Quarter: 2008Q4

REPORT INFORMATION
  Report Type: 
  Country: None (occurrence: None)
  Receive Date: 20081121
  Receipt Date: 20081112
  Transmission Date: 20090506
  Serious: Yes (Other)
  Sender: FDA-Public Use
  Company Number: PHHY2008BR28300

PATIENT
  Sex: Female

DRUGS (1)
  1. GALVUS MET COMBIPACK [Suspect]
     Dosage: 500 MG OF METFORMIN AND UNSPECIFIED DOSAGE OF VILDAGLIPTIN

REACTIONS (6)
  - ABDOMINAL PAIN UPPER [None]
  - DECREASED APPETITE [None]
  - DIARRHOEA [None]
  - LIVER DISORDER [None]
  - VOMITING [None]
  - WEIGHT DECREASED [None]
